FAERS Safety Report 18472897 (Version 2)
Quarter: 2020Q4

REPORT INFORMATION
  Report Type: Spontaneous
  Country: US (occurrence: US)
  Receive Date: 20201106
  Receipt Date: 20201110
  Transmission Date: 20210114
  Serious: Yes (Other)
  Sender: FDA-Public Use
  Company Number: US-PFIZER INC-2020425966

PATIENT
  Sex: Female

DRUGS (1)
  1. PREMARIN [Suspect]
     Active Substance: ESTROGENS, CONJUGATED
     Indication: VULVOVAGINAL INJURY
     Dosage: UNK (USES IT EVERY TWO TO THREE DAYS AND APPLIES WITH HER FINGER AND INSERTS WITH FINGER)

REACTIONS (13)
  - Weight increased [Unknown]
  - Osteoporosis [Unknown]
  - Off label use [Unknown]
  - Bladder prolapse [Unknown]
  - Vaginal infection [Unknown]
  - Migraine [Unknown]
  - Depression [Unknown]
  - Wrong technique in device usage process [Unknown]
  - Product use in unapproved indication [Unknown]
  - Breast pain [Unknown]
  - Mood swings [Unknown]
  - Night sweats [Unknown]
  - Product dose omission issue [Unknown]
